FAERS Safety Report 20849109 (Version 2)
Quarter: 2022Q2

REPORT INFORMATION
  Report Type: Report from Study
  Country: US (occurrence: US)
  Receive Date: 20220519
  Receipt Date: 20220622
  Transmission Date: 20220720
  Serious: No
  Sender: FDA-Public Use
  Company Number: US-NOVARTISTESTPH-NVSC2022US114974

PATIENT
  Age: 73 Year
  Sex: Female

DRUGS (2)
  1. LEQVIO [Suspect]
     Active Substance: INCLISIRAN SODIUM
     Indication: Product used for unknown indication
     Dosage: UNK
     Route: 058
     Dates: start: 20220404
  2. CRESTOR [Concomitant]
     Active Substance: ROSUVASTATIN CALCIUM
     Indication: Product used for unknown indication
     Dosage: UNK
     Route: 065

REACTIONS (9)
  - Myalgia [Not Recovered/Not Resolved]
  - Trigger finger [Not Recovered/Not Resolved]
  - Joint lock [Not Recovered/Not Resolved]
  - Contusion [Unknown]
  - Musculoskeletal chest pain [Not Recovered/Not Resolved]
  - Fall [Unknown]
  - Pain in extremity [Recovering/Resolving]
  - Blood cholesterol decreased [Unknown]
  - Insomnia [Recovered/Resolved]

NARRATIVE: CASE EVENT DATE: 20220404
